FAERS Safety Report 23339676 (Version 1)
Quarter: 2023Q4

REPORT INFORMATION
  Report Type: Report from Study
  Country: ZA (occurrence: None)
  Receive Date: 20231226
  Receipt Date: 20231226
  Transmission Date: 20240110
  Serious: Yes (Hospitalization)
  Sender: FDA-Public Use
  Company Number: 2023A289446

PATIENT
  Age: 72 Year
  Sex: Female

DRUGS (7)
  1. BUDESONIDE\FORMOTEROL FUMARATE DIHYDRATE [Suspect]
     Active Substance: BUDESONIDE\FORMOTEROL FUMARATE DIHYDRATE
     Indication: Chronic obstructive pulmonary disease
     Dosage: 160 UG/INHALATION, TWO TIMES A DAY
     Route: 055
  2. ENALAPRIL\HYDROCHLOROTHIAZIDE [Concomitant]
     Active Substance: ENALAPRIL\HYDROCHLOROTHIAZIDE
     Indication: Hypertension
     Route: 048
  3. SERDEP [Concomitant]
     Indication: Depression
     Route: 048
  4. ECOTRIN [Concomitant]
     Active Substance: ASPIRIN
     Indication: Anticoagulant therapy
     Route: 048
  5. PANTOCID [Concomitant]
     Indication: Ulcer
     Route: 048
  6. CHOLESTYRAMINE [Concomitant]
     Active Substance: CHOLESTYRAMINE
     Indication: Blood cholesterol abnormal
     Dosage: DAILY
     Route: 048
  7. SEREFLO SYNCHROBREATHE [Concomitant]
     Indication: Chronic obstructive pulmonary disease
     Dosage: 25UG/INHAL TWO TIMES A DAY
     Route: 055

REACTIONS (2)
  - Lung disorder [Unknown]
  - Dyspnoea [Unknown]
